FAERS Safety Report 6973424-6 (Version None)
Quarter: 2010Q3

REPORT INFORMATION
  Report Type: 
  Country: None (occurrence: None)
  Receive Date: 20100824
  Receipt Date: 20100601
  Transmission Date: 20110219
  Serious: No
  Sender: FDA-Public Use
  Company Number: 309455

PATIENT
  Age: 49 Year
  Sex: Female

DRUGS (1)
  1. VICTOZA [Suspect]
     Indication: TYPE 2 DIABETES MELLITUS
     Dosage: 1.2 U, QD, SUBCUTANEOUS
     Route: 058
     Dates: start: 20100508

REACTIONS (3)
  - DIARRHOEA [None]
  - ERUCTATION [None]
  - FLATULENCE [None]
